FAERS Safety Report 7585458-1 (Version None)
Quarter: 2011Q3

REPORT INFORMATION
  Report Type: 
  Country: None (occurrence: None)
  Receive Date: 20110701
  Receipt Date: 20110616
  Transmission Date: 20111222
  Serious: Yes (Hospitalization, Other)
  Sender: FDA-Public Use
  Company Number: US-BAYER-201030316NA

PATIENT
  Age: 39 Year
  Sex: Female
  Weight: 63.492 kg

DRUGS (15)
  1. YAZ [Suspect]
     Indication: PREMENSTRUAL SYNDROME
     Route: 048
     Dates: start: 20080301
  2. AMITRIPTYLINE HCL [Concomitant]
  3. METOPROLOL TARTRATE [Concomitant]
     Indication: HYPERTENSION
     Dosage: UNK
     Dates: start: 20060101
  4. BUSPIRONE HCL [Concomitant]
  5. SYNTHROID [Concomitant]
     Indication: THYROID FUNCTION TEST ABNORMAL
     Dosage: UNK
     Dates: start: 20060101
  6. LORAZEPAM [Concomitant]
  7. ESTRADIOL [Concomitant]
  8. EFFEXOR [Concomitant]
     Indication: ANXIETY
     Dosage: UNK
     Dates: start: 20010101
  9. BUSPAR [Concomitant]
     Indication: ANXIETY
     Dosage: UNK
     Dates: start: 20020101
  10. LEVOTHYROXINE SODIUM [Concomitant]
  11. CELEBREX [Concomitant]
     Indication: MYALGIA
     Dosage: UNK
     Dates: start: 20010101
  12. YAZ [Suspect]
     Indication: POLYCYSTIC OVARIES
  13. CELEBREX [Concomitant]
     Indication: HEADACHE
  14. YAZ [Suspect]
     Indication: HIRSUTISM
  15. YAZ [Suspect]
     Indication: BLOOD TESTOSTERONE INCREASED

REACTIONS (4)
  - CHOLELITHIASIS [None]
  - ABDOMINAL PAIN [None]
  - CHOLECYSTITIS [None]
  - CHOLECYSTITIS ACUTE [None]
